FAERS Safety Report 20819930 (Version 2)
Quarter: 2022Q2

REPORT INFORMATION
  Report Type: Spontaneous
  Country: US (occurrence: US)
  Receive Date: 20220512
  Receipt Date: 20220526
  Transmission Date: 20220721
  Serious: Yes (Hospitalization)
  Sender: FDA-Public Use
  Company Number: US-TEVA-2022-US-2034885

PATIENT
  Age: 54 Year
  Sex: Male

DRUGS (6)
  1. HYDROMORPHONE [Suspect]
     Active Substance: HYDROMORPHONE
     Indication: Headache
     Dosage: 24 MILLIGRAM DAILY; AS NEEDED WITH A MAXIMUM OF 1 MG/H
     Route: 065
  2. HYDROMORPHONE [Suspect]
     Active Substance: HYDROMORPHONE
     Dosage: 24 MILLIGRAM DAILY;
     Route: 065
  3. EPINEPHRINE [Suspect]
     Active Substance: EPINEPHRINE
     Indication: Headache
     Dosage: 8 ML
     Route: 065
  4. KETOROLAC [Suspect]
     Active Substance: KETOROLAC TROMETHAMINE
     Indication: Headache
     Dosage: 120 MILLIGRAM DAILY; AS NEEDED, WITH 3 TOTAL DOSES
     Route: 042
  5. ACETAMINOPHEN\OXYCODONE HYDROCHLORIDE [Suspect]
     Active Substance: ACETAMINOPHEN\OXYCODONE HYDROCHLORIDE
     Indication: Headache
     Dosage: 5MG/325MG GIVEN ORALLY EVERY 4H AS NEEDED, 1 TO 2 DOSES
     Route: 048
  6. BUPIVACAINE [Suspect]
     Active Substance: BUPIVACAINE
     Indication: Headache
     Dosage: 3 ML
     Route: 065

REACTIONS (2)
  - Somnolence [Recovering/Resolving]
  - Drug ineffective [Unknown]
